FAERS Safety Report 7134579-6 (Version None)
Quarter: 2010Q4

REPORT INFORMATION
  Report Type: 
  Country: None (occurrence: None)
  Receive Date: 20101203
  Receipt Date: 20101119
  Transmission Date: 20110411
  Serious: Yes (Other)
  Sender: FDA-Public Use
  Company Number: PHHY2010ZA79646

PATIENT
  Age: 71 Year
  Sex: Female

DRUGS (5)
  1. GLEEVEC [Suspect]
     Indication: CHRONIC MYELOID LEUKAEMIA
  2. METFORMIN [Concomitant]
     Dosage: 500 MG PER DAY
  3. ENALAPRIL MALEATE [Concomitant]
     Dosage: 10 MG, BID
  4. NIFEDIPINE [Concomitant]
     Dosage: 30 MG PER DAY
  5. CIMETIDINE [Concomitant]
     Dosage: 200 MG, TID

REACTIONS (8)
  - ABDOMINAL PAIN UPPER [None]
  - DEHYDRATION [None]
  - DIZZINESS [None]
  - DUODENITIS [None]
  - MUSCLE SPASMS [None]
  - NAUSEA [None]
  - NEUROPATHY PERIPHERAL [None]
  - VOMITING [None]
